FAERS Safety Report 18144984 (Version 1)
Quarter: 2020Q3

REPORT INFORMATION
  Report Type: Spontaneous
  Country: US (occurrence: US)
  Receive Date: 20200813
  Receipt Date: 20200813
  Transmission Date: 20201103
  Serious: No
  Sender: FDA-Public Use
  Company Number: US-TEVA-2020-US-1812128

PATIENT
  Age: 45 Year
  Sex: Male

DRUGS (1)
  1. AUSTEDO [Suspect]
     Active Substance: DEUTETRABENAZINE
     Dosage: 36 MILLIGRAM DAILY; TITRATED OVER A COUPLE OF MONTHS UP TO 36 MG PER DAY
     Route: 065

REACTIONS (1)
  - Drug ineffective [Unknown]
